FAERS Safety Report 10094749 (Version 1)
Quarter: 2014Q2

REPORT INFORMATION
  Report Type: Spontaneous
  Country: US (occurrence: None)
  Receive Date: 20140421
  Receipt Date: 20140421
  Transmission Date: 20141212
  Serious: Yes (Hospitalization)
  Sender: FDA-Public Use
  Company Number: None

PATIENT
  Age: 74 Year
  Sex: Female

DRUGS (3)
  1. IFOSFAMIDE [Suspect]
  2. PACLITAXEL (TAXOL) [Suspect]
  3. PEGFILGRASTIM (NEULASTA) [Suspect]

REACTIONS (4)
  - Chest pain [None]
  - Blood phosphorus decreased [None]
  - Blood creatinine increased [None]
  - Hypokalaemia [None]
